FAERS Safety Report 7334656-0 (Version None)
Quarter: 2011Q1

REPORT INFORMATION
  Report Type: 
  Country: None (occurrence: None)
  Receive Date: 20110222
  Receipt Date: 20110208
  Transmission Date: 20110831
  Serious: Yes (Hospitalization)
  Sender: FDA-Public Use
  Company Number: DSA_42685_2010

PATIENT
  Age: 60 Year
  Sex: Male

DRUGS (6)
  1. PARIET [Concomitant]
  2. PLAVIX [Concomitant]
  3. LIPITOR [Concomitant]
  4. ASPIRIN [Concomitant]
  5. HERBESSER R (HERBESSER R - DILTIAZEM HYDROCHLORIDE) [Suspect]
     Indication: ANGINA UNSTABLE
     Dosage: 200 MG QD. ORAL
     Route: 048
     Dates: start: 20100201, end: 20100201
  6. HERBESSER R (HERBESSER R - DILTIAZEM HYDROCHLORIDE) [Suspect]
     Indication: ANGINA UNSTABLE
     Dosage: 200 MG QD. ORAL
     Route: 048
     Dates: start: 20100107, end: 20100115

REACTIONS (9)
  - BLOOD UREA INCREASED [None]
  - BLOOD BILIRUBIN INCREASED [None]
  - ACUTE GENERALISED EXANTHEMATOUS PUSTULOSIS [None]
  - ALANINE AMINOTRANSFERASE INCREASED [None]
  - SKIN TEST POSITIVE [None]
  - ELECTROCARDIOGRAM ST SEGMENT ABNORMAL [None]
  - ASPARTATE AMINOTRANSFERASE INCREASED [None]
  - LIVER DISORDER [None]
  - GAMMA-GLUTAMYLTRANSFERASE INCREASED [None]
